FAERS Safety Report 25014949 (Version 1)
Quarter: 2025Q1

REPORT INFORMATION
  Report Type: Report from Study
  Country: US (occurrence: US)
  Receive Date: 20250226
  Receipt Date: 20250226
  Transmission Date: 20250409
  Serious: Yes (Hospitalization, Other)
  Sender: UCB
  Company Number: US-UCBSA-2025010653

PATIENT
  Sex: Male

DRUGS (2)
  1. BRIVARACETAM [Suspect]
     Active Substance: BRIVARACETAM
     Indication: Seizure
  2. BRIVARACETAM [Suspect]
     Active Substance: BRIVARACETAM

REACTIONS (2)
  - Seizure [Not Recovered/Not Resolved]
  - Therapeutic response decreased [Unknown]
